FAERS Safety Report 10102564 (Version 2)
Quarter: 2014Q2

REPORT INFORMATION
  Report Type: Other
  Country: US (occurrence: US)
  Receive Date: 20140424
  Receipt Date: 20140627
  Transmission Date: 20141212
  Serious: Yes (Hospitalization, Other)
  Sender: FDA-Public Use
  Company Number: US-GSKPPD-2014GSK000226

PATIENT
  Age: 74 Year
  Sex: Male
  Weight: 102.6 kg

DRUGS (7)
  1. AVANDIA [Suspect]
     Indication: DIABETES MELLITUS
     Route: 048
     Dates: start: 2003, end: 2007
  2. ASPIRIN [Concomitant]
  3. DILTIAZEM [Concomitant]
  4. FENOFIBRATE [Concomitant]
  5. LASIX [Concomitant]
  6. LISINOPRIL [Concomitant]
  7. ZOCOR [Concomitant]

REACTIONS (2)
  - Myocardial infarction [None]
  - Chest pain [Recovered/Resolved]
